FAERS Safety Report 20450725 (Version 3)
Quarter: 2022Q1

REPORT INFORMATION
  Report Type: Spontaneous
  Country: US (occurrence: US)
  Receive Date: 20220209
  Receipt Date: 20220222
  Transmission Date: 20220423
  Serious: No
  Sender: FDA-Public Use
  Company Number: US-ORGANON-O2202USA000526

PATIENT
  Age: 25 Year
  Sex: Female
  Weight: 78.9 kg

DRUGS (1)
  1. NEXPLANON [Suspect]
     Active Substance: ETONOGESTREL
     Indication: Contraception
     Dosage: ONE EVERY THREE YEARS (LEFT ARM)
     Route: 059
     Dates: start: 20211207

REACTIONS (2)
  - Implant site pain [Not Recovered/Not Resolved]
  - Implant site mass [Not Recovered/Not Resolved]

NARRATIVE: CASE EVENT DATE: 20220127
